FAERS Safety Report 15195590 (Version 1)
Quarter: 2018Q3

REPORT INFORMATION
  Report Type: Spontaneous
  Country: US (occurrence: US)
  Receive Date: 20180725
  Receipt Date: 20180725
  Transmission Date: 20181010
  Serious: Yes (Hospitalization, Other)
  Sender: FDA-Public Use
  Company Number: US-AMNEAL PHARMACEUTICALS-2018AMN00432

PATIENT
  Sex: Male

DRUGS (4)
  1. HYDROCODONE AND ACETAMINOPHEN [Suspect]
     Active Substance: ACETAMINOPHEN\HYDROCODONE
     Indication: PAIN
     Dosage: UNK
     Route: 065
  2. HYDROCODONE BITARTRATE AND IBUPROFEN [Suspect]
     Active Substance: HYDROCODONE BITARTRATE\IBUPROFEN
     Indication: PAIN
     Dosage: UNK
     Route: 065
  3. OXYCODONE AND ACETAMINOPHEN [Suspect]
     Active Substance: ACETAMINOPHEN\OXYCODONE HYDROCHLORIDE
     Indication: PAIN
     Dosage: UNK
     Route: 065
  4. OXYCODONE HYDROCHLORIDE. [Suspect]
     Active Substance: OXYCODONE HYDROCHLORIDE
     Indication: PAIN
     Dosage: UNK
     Route: 065

REACTIONS (17)
  - Mental disorder [Unknown]
  - Decreased appetite [Unknown]
  - Agitation [Unknown]
  - Delusion [Unknown]
  - Irritability [Unknown]
  - Hyporesponsive to stimuli [Unknown]
  - Drug dependence [Unknown]
  - Memory impairment [Unknown]
  - Paranoia [Unknown]
  - Hallucination [Unknown]
  - Abnormal behaviour [Unknown]
  - Speech disorder [Unknown]
  - Patient uncooperative [Unknown]
  - Judgement impaired [Unknown]
  - Psychotic disorder [Unknown]
  - Insomnia [Unknown]
  - Confusional state [Unknown]

NARRATIVE: CASE EVENT DATE: 201507
